FAERS Safety Report 8502403-2 (Version None)
Quarter: 2012Q3

REPORT INFORMATION
  Report Type: 
  Country: None (occurrence: None)
  Receive Date: 20120711
  Receipt Date: 20120702
  Transmission Date: 20120928
  Serious: Yes (Other)
  Sender: FDA-Public Use
  Company Number: US-JNJCP-30000116911

PATIENT
  Age: 32 Year
  Sex: Female
  Weight: 136 kg

DRUGS (3)
  1. NTG WET SKIN SUNBLOCK LOTION SPF45+ USA NTWS45US [Suspect]
     Dosage: LIBERALLY ALL OVER BODY, THREE TO FOUR TIMES
     Route: 061
     Dates: start: 20120630, end: 20120630
  2. METFORMIN HCL [Concomitant]
     Indication: POLYCYSTIC OVARIES
     Dosage: 500 MG TWICE A DAY SINCE TWO MONTHS
  3. ORTHO TRI-CYCLEN [Concomitant]
     Dosage: ONCE A DAY SINCE FIFTEEN YEARS

REACTIONS (4)
  - HEAT STROKE [None]
  - SUNBURN [None]
  - APPLICATION SITE DISCOLOURATION [None]
  - APPLICATION SITE VESICLES [None]
